FAERS Safety Report 8590154-8 (Version None)
Quarter: 2012Q3

REPORT INFORMATION
  Report Type: 
  Country: None (occurrence: None)
  Receive Date: 20120813
  Receipt Date: 20120808
  Transmission Date: 20120928
  Serious: Yes (Hospitalization, Disabling, Other)
  Sender: FDA-Public Use
  Company Number: US-009507513-1203USA01076

PATIENT

DRUGS (17)
  1. MK-0152 [Concomitant]
     Indication: HYPERTENSION
     Dosage: 25 MG, QD
     Route: 048
     Dates: start: 20040101, end: 20110801
  2. MEDROL [Concomitant]
     Indication: RHEUMATOID ARTHRITIS
     Dosage: 40 MG, UNK
  3. ALENDRONATE SODIUM [Suspect]
     Dosage: 70 MG, UNK
     Route: 048
     Dates: start: 20100204, end: 20100301
  4. NORVASC [Concomitant]
     Indication: HYPERTENSION
     Dosage: 10 MG, QD
     Route: 048
     Dates: start: 20060101
  5. AMLODIPINE [Concomitant]
     Indication: HYPERTENSION
     Dates: start: 20070601, end: 20110801
  6. ALENDRONATE SODIUM [Suspect]
     Dosage: 70 MG, UNK
     Route: 048
     Dates: start: 20080925, end: 20091005
  7. FOSAMAX [Suspect]
     Dosage: 70 MG, UNK
     Route: 048
     Dates: start: 20080228, end: 20080826
  8. CORTICOSTEROIDS (UNSPECIFIED) [Concomitant]
     Dates: start: 19900101, end: 20030101
  9. PRINIVIL [Concomitant]
     Indication: HYPERTENSION
     Dosage: 20 MG, QD
     Route: 048
     Dates: start: 20050201, end: 20110801
  10. ARAVA [Concomitant]
     Indication: RHEUMATOID ARTHRITIS
     Dosage: 20 MG, QD
     Route: 048
     Dates: start: 20031201
  11. RALOXIFENE HYDROCHLORIDE [Concomitant]
     Indication: OSTEOPOROSIS
  12. LEFLUNOMIDE [Concomitant]
     Indication: HYPERTENSION
     Dates: start: 20060301, end: 20110801
  13. RALOXIFENE HYDROCHLORIDE [Concomitant]
     Indication: OSTEOPENIA
     Dates: start: 20020319, end: 20020423
  14. FOSAMAX [Suspect]
     Indication: OSTEOPOROSIS
     Dosage: 70 MG, QW
     Route: 048
     Dates: start: 20020105, end: 20100419
  15. FOSAMAX [Suspect]
     Indication: OSTEOPENIA
     Dosage: 70 MG, QW
     Route: 048
     Dates: start: 20031227, end: 20080129
  16. ALENDRONATE SODIUM [Suspect]
     Dosage: 70 MG, UNK
     Route: 048
     Dates: start: 20091112, end: 20100406
  17. ATREXEL [Concomitant]
     Indication: RHEUMATOID ARTHRITIS
     Dosage: 15 MG, QW
     Route: 048
     Dates: start: 20040201, end: 20110901

REACTIONS (31)
  - ANAEMIA [None]
  - ARTHRALGIA [None]
  - GAIT DISTURBANCE [None]
  - UPPER RESPIRATORY TRACT INFECTION [None]
  - LOW TURNOVER OSTEOPATHY [None]
  - UTERINE DISORDER [None]
  - CHEST PAIN [None]
  - VULVOVAGINAL DRYNESS [None]
  - COUGH [None]
  - PAIN IN EXTREMITY [None]
  - FALL [None]
  - MUSCULOSKELETAL DISCOMFORT [None]
  - SPINAL OSTEOARTHRITIS [None]
  - FRACTURE NONUNION [None]
  - IMPAIRED HEALING [None]
  - RIB FRACTURE [None]
  - FOOT FRACTURE [None]
  - MUSCLE STRAIN [None]
  - LETHARGY [None]
  - MUSCULAR WEAKNESS [None]
  - CHONDROCALCINOSIS [None]
  - DIZZINESS [None]
  - BACK PAIN [None]
  - FEMUR FRACTURE [None]
  - DYSPEPSIA [None]
  - PRURITUS [None]
  - MUSCULOSKELETAL DISORDER [None]
  - URGE INCONTINENCE [None]
  - ELECTROCARDIOGRAM ST-T CHANGE [None]
  - HYPOKALAEMIA [None]
  - OSTEOPENIA [None]
